FAERS Safety Report 5537079-X (Version None)
Quarter: 2007Q4

REPORT INFORMATION
  Report Type: 
  Country: None (occurrence: None)
  Receive Date: 20071207
  Receipt Date: 20071205
  Transmission Date: 20080405
  Serious: Yes (Death, Life-Threatening, Other)
  Sender: FDA-Public Use
  Company Number: US-BRISTOL-MYERS SQUIBB COMPANY-14005078

PATIENT
  Age: 69 Year
  Sex: Male

DRUGS (6)
  1. CYTOXAN [Suspect]
  2. REMICADE [Suspect]
     Indication: VASCULITIS
     Dosage: INFLIXIMAB RECOMBINANT LYOPHILIZED POWDER.
     Route: 042
     Dates: end: 20070801
  3. REMICADE [Suspect]
     Indication: RHEUMATOID ARTHRITIS
     Dosage: INFLIXIMAB RECOMBINANT LYOPHILIZED POWDER.
     Route: 042
     Dates: end: 20070801
  4. PLAQUENIL [Suspect]
  5. PREDNISONE [Suspect]
  6. COLCHICINE [Suspect]

REACTIONS (7)
  - ASTHENIA [None]
  - CEREBROVASCULAR ACCIDENT [None]
  - CONFUSIONAL STATE [None]
  - MENTAL STATUS CHANGES [None]
  - MULTI-ORGAN FAILURE [None]
  - PROGRESSIVE MULTIFOCAL LEUKOENCEPHALOPATHY [None]
  - RESPIRATORY DISTRESS [None]
